FAERS Safety Report 5383396-6 (Version None)
Quarter: 2007Q3

REPORT INFORMATION
  Report Type: 
  Country: None (occurrence: None)
  Receive Date: 20070710
  Receipt Date: 20070628
  Transmission Date: 20080115
  Serious: Yes (Disabling)
  Sender: FDA-Public Use
  Company Number: BR-PFIZER INC-2007054935

PATIENT
  Age: 38 Year
  Sex: Male
  Weight: 65 kg

DRUGS (1)
  1. CHAMPIX [Suspect]
     Indication: TOBACCO USER
     Route: 048
     Dates: start: 20070601, end: 20070620

REACTIONS (6)
  - BACK PAIN [None]
  - CONSTIPATION [None]
  - DUODENITIS [None]
  - GASTRITIS [None]
  - INSOMNIA [None]
  - WEIGHT DECREASED [None]
